FAERS Safety Report 4364230-X (Version None)
Quarter: 2004Q2

REPORT INFORMATION
  Report Type: 
  Country: None (occurrence: None)
  Receive Date: 20040519
  Receipt Date: 20040506
  Transmission Date: 20050107
  Serious: Yes (Disabling, Congenital Anomaly)
  Sender: FDA-Public Use
  Company Number: HQ5397519NOV2002

PATIENT
  Sex: Male

DRUGS (1)
  1. DIMETAPP [Suspect]
     Dosage: TRANSPLACENTAL
     Route: 064

REACTIONS (3)
  - CONGENITAL ANOMALY [None]
  - CONGENITAL BRAIN DAMAGE [None]
  - DRUG EXPOSURE DURING PREGNANCY [None]
